FAERS Safety Report 23867957 (Version 1)
Quarter: 2024Q2

REPORT INFORMATION
  Report Type: Spontaneous
  Country: FR (occurrence: FR)
  Receive Date: 20240517
  Receipt Date: 20240517
  Transmission Date: 20240715
  Serious: Yes (Other)
  Sender: FDA-Public Use
  Company Number: FR-BAXTER-2024BAX017904

PATIENT
  Age: 83 Year
  Sex: Female
  Weight: 46 kg

DRUGS (22)
  1. CYCLOPHOSPHAMIDE [Suspect]
     Active Substance: CYCLOPHOSPHAMIDE
     Indication: Neoplasm malignant
     Dosage: UNK ROUTE OF ADMIN (FREE TEXT): UNKNOWN ROUTE
     Route: 065
     Dates: start: 20200803, end: 20201116
  2. CYCLOPHOSPHAMIDE [Suspect]
     Active Substance: CYCLOPHOSPHAMIDE
     Dosage: UNK ROUTE OF ADMIN (FREE TEXT): UNKNOWN ROUTE
     Route: 065
     Dates: start: 20180111, end: 20180426
  3. CYCLOPHOSPHAMIDE [Suspect]
     Active Substance: CYCLOPHOSPHAMIDE
     Dosage: UNK ROUTE OF ADMIN (FREE TEXT): UNKNOWN ROUTE
     Route: 065
     Dates: start: 20180111, end: 20180426
  4. CYCLOPHOSPHAMIDE [Suspect]
     Active Substance: CYCLOPHOSPHAMIDE
     Dosage: UNK ROUTE OF ADMIN (FREE TEXT): UNKNOWN ROUTE
     Route: 065
     Dates: start: 20200803, end: 20201116
  5. DOXORUBICIN [Suspect]
     Active Substance: DOXORUBICIN
     Indication: Neoplasm malignant
     Dosage: UNK ROUTE OF ADMIN (FREE TEXT): UNKNOWN ROUTE
     Route: 065
     Dates: start: 20200803, end: 20201116
  6. DOXORUBICIN [Suspect]
     Active Substance: DOXORUBICIN
     Dosage: UNK ROUTE OF ADMIN (FREE TEXT): UNKNOWN ROUTE
     Route: 065
     Dates: start: 20200803, end: 20201116
  7. EPCORITAMAB [Suspect]
     Active Substance: EPCORITAMAB
     Indication: Follicular lymphoma
     Dosage: 48 MG, C1 (STEP-UP), CYCLE 2(WEEKLY) AND C4-12 (EVERY 4 WEEKS) PER PROTOCOL, EVERY 1 WEEK, ONGOING
     Route: 058
     Dates: start: 20240124
  8. ETOPOSIDE [Suspect]
     Active Substance: ETOPOSIDE
     Indication: Neoplasm malignant
     Dosage: UNK ROUTE OF ADMIN (FREE TEXT): UNKNOWN ROUTE
     Route: 065
     Dates: start: 20200803, end: 20201116
  9. LENALIDOMIDE [Suspect]
     Active Substance: LENALIDOMIDE
     Dosage: 10 MG, EVERY 1 DAYS, ONGOING
     Route: 048
     Dates: start: 20240123
  10. RITUXIMAB [Suspect]
     Active Substance: RITUXIMAB
     Indication: Viral infection
     Dosage: 560 MG, Q4W
     Route: 042
     Dates: start: 20240123
  11. ASPIRIN [Concomitant]
     Active Substance: ASPIRIN
     Indication: Thrombosis prophylaxis
     Dosage: 75 MG, Q24H
     Route: 065
     Dates: start: 20240123
  12. BACTRIM [Concomitant]
     Active Substance: SULFAMETHOXAZOLE\TRIMETHOPRIM
     Indication: Antifungal prophylaxis
     Dosage: 400 MG, EVERY 24 HOURS ROUTE OF ADMIN (FREE TEXT): UNKNOWN ROUTE
     Route: 065
     Dates: start: 20240222
  13. GABAPENTIN [Concomitant]
     Active Substance: GABAPENTIN
     Indication: Essential tremor
     Dosage: 800 MG, Q24H
     Route: 065
  14. GABAPENTIN [Concomitant]
     Active Substance: GABAPENTIN
     Dosage: 800 MG, EVERY 24 HOURS ROUTE OF ADMIN (FREE TEXT): UNKNOWN ROUTE
     Route: 065
  15. MEROPENEM [Concomitant]
     Active Substance: MEROPENEM
     Indication: Cytokine release syndrome
     Dosage: 1 G, Q8H
     Route: 065
     Dates: start: 20240223
  16. MEROPENEM [Concomitant]
     Active Substance: MEROPENEM
     Dosage: 1 G, EVERY 8 HOURS ROUTE OF ADMIN (FREE TEXT): UNKNOWN ROUTE
     Route: 065
     Dates: start: 20240223
  17. PANTOPRAZOLE [Concomitant]
     Active Substance: PANTOPRAZOLE
     Indication: Chronic gastritis
     Dosage: 40 MG, Q24H
     Route: 065
     Dates: start: 2008
  18. ACETAMINOPHEN [Concomitant]
     Active Substance: ACETAMINOPHEN
     Indication: Cytokine release syndrome
     Dosage: 1 G, AS NECESSARY ROUTE OF ADMIN (FREE TEXT): UNKNOWN ROUTE
     Route: 065
     Dates: start: 20240222
  19. PROPRANOLOL [Concomitant]
     Active Substance: PROPRANOLOL HYDROCHLORIDE
     Indication: Hypertension
     Dosage: 40 MG, Q24H
     Route: 065
     Dates: start: 20240304
  20. SPIRONOLACTONE [Concomitant]
     Active Substance: SPIRONOLACTONE
     Indication: Hypertension
     Dosage: 50 MG, Q24H
     Route: 065
     Dates: start: 20240305
  21. VALACYCLOVIR HYDROCHLORIDE [Concomitant]
     Active Substance: VALACYCLOVIR HYDROCHLORIDE
     Indication: Antiviral prophylaxis
     Dosage: 500 MG, Q24H
     Route: 065
     Dates: start: 20240123
  22. VALACYCLOVIR HYDROCHLORIDE [Concomitant]
     Active Substance: VALACYCLOVIR HYDROCHLORIDE
     Dosage: 500 MG, EVERY 24 HOURS ROUTE OF ADMIN (FREE TEXT): UNKNOWN ROUTE
     Route: 065
     Dates: start: 20240123

REACTIONS (2)
  - Clostridium difficile colitis [Not Recovered/Not Resolved]
  - Diarrhoea [Unknown]

NARRATIVE: CASE EVENT DATE: 20240417
